FAERS Safety Report 9119570 (Version 3)
Quarter: 2013Q2

REPORT INFORMATION
  Report Type: Spontaneous
  Country: IT (occurrence: IT)
  Receive Date: 20130226
  Receipt Date: 20130402
  Transmission Date: 20140414
  Serious: Yes (Hospitalization)
  Sender: FDA-Public Use
  Company Number: IT-SANOFI-AVENTIS-2013SA016348

PATIENT
  Age: 92 Year
  Sex: Male

DRUGS (6)
  1. LASIX [Suspect]
     Indication: HYPERTENSION
     Route: 048
     Dates: start: 20120101
  2. COTAREG [Suspect]
     Indication: PRODUCT USED FOR UNKNOWN INDICATION
     Dosage: STRENGTH: 320/12.5 MG FILM-COATED TABLETS?DOSE- HALF TABLET /DIE (0.5 MG)
     Route: 048
     Dates: start: 20120101, end: 20121212
  3. TAMSULOSIN HYDROCHLORIDE [Concomitant]
  4. CARDIRENE [Concomitant]
     Dosage: STRENGTH: 160 MG
  5. AVODART [Concomitant]
     Dosage: STRENGTH: 0.5 MG
  6. LANOXIN [Concomitant]
     Dosage: STRENGTH: 0.125 MG

REACTIONS (2)
  - Extrasystoles [Recovering/Resolving]
  - Hyponatraemia [Recovering/Resolving]
